FAERS Safety Report 5003836-1 (Version None)
Quarter: 2006Q2

REPORT INFORMATION
  Report Type: 
  Country: None (occurrence: None)
  Receive Date: 20060515
  Receipt Date: 20060503
  Transmission Date: 20061013
  Serious: Yes (Other)
  Sender: FDA-Public Use
  Company Number: CHNY2006DE00745

PATIENT
  Age: 49 Year
  Sex: Male
  Weight: 85 kg

DRUGS (1)
  1. NICOTINE [Suspect]
     Indication: SMOKING CESSATION THERAPY
     Dosage: 21 M, QD, TRANSDERMAL
     Route: 062
     Dates: start: 20060121, end: 20060121

REACTIONS (17)
  - ABDOMINAL PAIN UPPER [None]
  - AGEUSIA [None]
  - ANOREXIA [None]
  - ANOSMIA [None]
  - DIZZINESS [None]
  - DRUG TOXICITY [None]
  - DYSGEUSIA [None]
  - GLOSSODYNIA [None]
  - HEADACHE [None]
  - MALAISE [None]
  - NAUSEA [None]
  - OVERDOSE [None]
  - PAIN [None]
  - PALPITATIONS [None]
  - SLEEP DISORDER [None]
  - TONGUE COATED [None]
  - TONGUE DISCOLOURATION [None]
